FAERS Safety Report 24806972 (Version 1)
Quarter: 2025Q1

REPORT INFORMATION
  Report Type: Spontaneous
  Country: US (occurrence: US)
  Receive Date: 20250104
  Receipt Date: 20250104
  Transmission Date: 20250408
  Serious: No
  Sender: NEUROCRINE BIOSCIENCES
  Company Number: US-NEUROCRINE BIOSCIENCES INC.-2024NBI12772

PATIENT
  Age: 72 Year
  Sex: Male

DRUGS (3)
  1. INGREZZA [Suspect]
     Active Substance: VALBENAZINE
     Indication: Tardive dyskinesia
     Route: 065
     Dates: start: 2024
  2. INGREZZA [Suspect]
     Active Substance: VALBENAZINE
     Route: 065
  3. INGREZZA [Suspect]
     Active Substance: VALBENAZINE
     Route: 065

REACTIONS (1)
  - Fatigue [Not Recovered/Not Resolved]
